FAERS Safety Report 16416800 (Version 1)
Quarter: 2019Q2

REPORT INFORMATION
  Report Type: Spontaneous
  Country: HU (occurrence: HU)
  Receive Date: 20190611
  Receipt Date: 20190611
  Transmission Date: 20190711
  Serious: Yes (Other)
  Sender: FDA-Public Use
  Company Number: PHHY2019HU131046

PATIENT
  Age: 77 Year
  Sex: Female

DRUGS (3)
  1. LETROZOLE. [Suspect]
     Active Substance: LETROZOLE
     Indication: BREAST CANCER METASTATIC
     Dosage: 1 DF, QD
     Route: 065
     Dates: start: 20190123
  2. PALBOCICLIB [Suspect]
     Active Substance: PALBOCICLIB
     Indication: BREAST CANCER METASTATIC
     Dosage: 125 MG, QD (IN 3/1 DOSAGE SCHEMA) ON 21 CONSECUTIVE DAYS, WHICH FOLLOWING 7 DAYS BREAK
     Route: 048
     Dates: start: 20190123, end: 201904
  3. PALBOCICLIB [Suspect]
     Active Substance: PALBOCICLIB
     Dosage: 75 MG, QD
     Route: 048
     Dates: start: 201904

REACTIONS (3)
  - Agranulocytosis [Recovering/Resolving]
  - Stomatitis [Recovering/Resolving]
  - Pyrexia [Recovered/Resolved]
